FAERS Safety Report 5105649-9 (Version None)
Quarter: 2006Q3

REPORT INFORMATION
  Report Type: 
  Country: None (occurrence: None)
  Receive Date: 20060915
  Receipt Date: 20060907
  Transmission Date: 20061208
  Serious: Yes (Hospitalization)
  Sender: FDA-Public Use
  Company Number: FR-AVENTIS-200614746EU

PATIENT
  Age: 75 Year
  Sex: Female

DRUGS (7)
  1. FLUDEX [Suspect]
     Indication: SECONDARY HYPERTENSION
     Route: 048
     Dates: end: 20060401
  2. FORLAX [Suspect]
     Dates: end: 20060401
  3. LEVOTHYROXINE SODIUM [Concomitant]
  4. CORDARONE [Concomitant]
  5. HYPERIUM [Concomitant]
     Route: 048
  6. TRIDESONIT [Concomitant]
  7. ZANIDIP [Concomitant]

REACTIONS (9)
  - BLOOD OSMOLARITY DECREASED [None]
  - ELECTROCARDIOGRAM QT PROLONGED [None]
  - FALL [None]
  - GASTROENTERITIS [None]
  - HYPOKALAEMIA [None]
  - HYPONATRAEMIA [None]
  - LUNG INFECTION [None]
  - SYNCOPE [None]
  - URINARY TRACT INFECTION [None]
